FAERS Safety Report 16555843 (Version 1)
Quarter: 2019Q3

REPORT INFORMATION
  Report Type: Spontaneous
  Country: FR (occurrence: FR)
  Receive Date: 20190710
  Receipt Date: 20190710
  Transmission Date: 20191004
  Serious: Yes (Hospitalization)
  Sender: FDA-Public Use
  Company Number: FR-ALLERGAN-1928130US

PATIENT
  Sex: Female
  Weight: 55.7 kg

DRUGS (15)
  1. PARACETAMOL BIOGARAN 500 MG [Suspect]
     Active Substance: ACETAMINOPHEN
     Indication: PRODUCT USED FOR UNKNOWN INDICATION
     Dosage: 6 DF, QD
     Route: 048
     Dates: end: 20190424
  2. IMOVANE [Concomitant]
     Active Substance: ZOPICLONE
  3. ALPHAGAN P [Suspect]
     Active Substance: BRIMONIDINE TARTRATE
     Indication: GLAUCOMA
     Dosage: 2 DF, QD
     Route: 047
     Dates: end: 20190424
  4. NOZINAN [Concomitant]
     Active Substance: LEVOMEPROMAZINE
  5. LACRIFLUID [Concomitant]
     Active Substance: CARBOMER
  6. SERESTA [Concomitant]
     Active Substance: OXAZEPAM
  7. TIMOLOL BASE [Concomitant]
     Active Substance: TIMOLOL
  8. OXYCONTIN L.P. 5 MG [Concomitant]
  9. MOVICOL [Suspect]
     Active Substance: POLYETHYLENE GLYCOL 3350\POTASSIUM CHLORIDE\SODIUM BICARBONATE\SODIUM CHLORIDE
     Indication: PRODUCT USED FOR UNKNOWN INDICATION
     Route: 048
     Dates: end: 20190424
  10. LASILIX 40 MG [Suspect]
     Active Substance: FUROSEMIDE
     Indication: HYPERTENSION
     Dosage: 3 DF, QD
     Route: 048
     Dates: start: 20190419, end: 20190424
  11. TIAPRIDAL [Concomitant]
     Active Substance: TIAPRIDE HYDROCHLORIDE
  12. EXOMUC [Suspect]
     Active Substance: ACETYLCYSTEINE
     Indication: BRONCHITIS
     Dosage: 3 DF, QD
     Route: 048
     Dates: start: 20190419, end: 20190424
  13. MIANSERINE (CHLORHYDRATE DE) [Concomitant]
     Active Substance: MIANSERIN HYDROCHLORIDE
  14. PERINDOPRIL [Suspect]
     Active Substance: PERINDOPRIL
     Indication: HYPERTENSION
     Dosage: 4 MG, QD
     Route: 048
     Dates: end: 20190424
  15. AUGMENTIN [Suspect]
     Active Substance: AMOXICILLIN\CLAVULANATE POTASSIUM
     Indication: BRONCHITIS
     Dosage: 3 DF, QD
     Route: 048
     Dates: start: 20190419, end: 20190424

REACTIONS (2)
  - Acute kidney injury [Recovered/Resolved]
  - Hypernatraemia [Recovered/Resolved]

NARRATIVE: CASE EVENT DATE: 20190424
